FAERS Safety Report 7963453-8 (Version None)
Quarter: 2011Q4

REPORT INFORMATION
  Report Type: 
  Country: None (occurrence: None)
  Receive Date: 20111208
  Receipt Date: 20111126
  Transmission Date: 20120403
  Serious: Yes (Hospitalization, Other)
  Sender: FDA-Public Use
  Company Number: US-BAYER-201017830NA

PATIENT
  Age: 23 Year
  Sex: Female
  Weight: 54.422 kg

DRUGS (11)
  1. LEVALBUTEROL HCL [Concomitant]
     Indication: ASTHMA
     Dosage: UNK
     Dates: end: 20080418
  2. TRAZODONE HCL [Concomitant]
     Indication: INSOMNIA
     Dosage: 50 MG, UNK
     Route: 048
     Dates: start: 20080314
  3. YAZ [Suspect]
     Indication: CONTRACEPTION
     Dosage: UNK UNK, QD
     Route: 048
     Dates: start: 20070501, end: 20080401
  4. YASMIN [Suspect]
     Indication: MENSTRUATION IRREGULAR
  5. YASMIN [Suspect]
     Indication: CONTRACEPTION
     Dosage: UNK UNK, QD
     Route: 048
     Dates: start: 20060101, end: 20070501
  6. EXCEDRIN (MIGRAINE) [Concomitant]
     Indication: MIGRAINE
     Dosage: UNK
     Dates: end: 20080418
  7. MAXALT [Concomitant]
     Indication: MIGRAINE
     Dosage: 10 MG, Q2HR
     Dates: start: 20080314
  8. VICODIN [Concomitant]
  9. YAZ [Suspect]
     Indication: MENSTRUATION IRREGULAR
  10. EXCEDRIN TENSION HEADACHE [Concomitant]
     Indication: HEADACHE
  11. ZYRTEC [Concomitant]
     Dosage: 10 MG, QD
     Dates: end: 20080418

REACTIONS (6)
  - TRANSIENT ISCHAEMIC ATTACK [None]
  - PAIN [None]
  - PARALYSIS [None]
  - HEADACHE [None]
  - VERTIGO [None]
  - MIGRAINE WITH AURA [None]
